FAERS Safety Report 5501391-0 (Version None)
Quarter: 2007Q4

REPORT INFORMATION
  Report Type: 
  Country: None (occurrence: None)
  Receive Date: 20071026
  Receipt Date: 20071015
  Transmission Date: 20080405
  Serious: Yes (Other)
  Sender: FDA-Public Use
  Company Number: GXKR2007GB08870

PATIENT
  Age: 90 Year
  Sex: Female

DRUGS (2)
  1. ACETYLSALICYLIC ACID SRT [Suspect]
     Indication: HYPERTENSION
     Dosage: 75 MG, QD, ORAL
     Route: 048
  2. AMLODIPINE [Concomitant]

REACTIONS (7)
  - ANOREXIA [None]
  - COLONIC OBSTRUCTION [None]
  - COLONIC STENOSIS [None]
  - DIVERTICULUM [None]
  - LARGE INTESTINAL OBSTRUCTION [None]
  - MEGACOLON [None]
  - NAUSEA [None]
